FAERS Safety Report 24002878 (Version 2)
Quarter: 2024Q2

REPORT INFORMATION
  Report Type: Spontaneous
  Country: US (occurrence: US)
  Receive Date: 20240624
  Receipt Date: 20240624
  Transmission Date: 20240716
  Serious: Yes (Hospitalization)
  Sender: FDA-Public Use
  Company Number: US-ROCHE-10000002204

PATIENT
  Age: 21 Year
  Sex: Female

DRUGS (4)
  1. RITUXIMAB [Suspect]
     Active Substance: RITUXIMAB
     Indication: Antisynthetase syndrome
     Route: 065
  2. RITUXIMAB [Suspect]
     Active Substance: RITUXIMAB
     Indication: Interstitial lung disease
  3. PREDNISONE [Suspect]
     Active Substance: PREDNISONE
     Indication: Antisynthetase syndrome
     Route: 065
  4. PREDNISONE [Suspect]
     Active Substance: PREDNISONE
     Indication: Interstitial lung disease

REACTIONS (4)
  - Maternal exposure during pregnancy [Unknown]
  - Oligohydramnios [Unknown]
  - Maternal exposure before pregnancy [Unknown]
  - Premature delivery [Unknown]
